FAERS Safety Report 6368326-2 (Version None)
Quarter: 2009Q3

REPORT INFORMATION
  Report Type: 
  Country: None (occurrence: None)
  Receive Date: 20090922
  Receipt Date: 20090912
  Transmission Date: 20100115
  Serious: Yes (Other)
  Sender: FDA-Public Use
  Company Number: US-CUBIST-2009S1000391

PATIENT

DRUGS (3)
  1. CUBICIN [Suspect]
     Indication: ENDOCARDITIS
  2. CUBICIN [Suspect]
  3. RIFAMPICIN [Suspect]
     Indication: ENDOCARDITIS

REACTIONS (4)
  - ANTIMICROBIAL SUSCEPTIBILITY TEST RESISTANT [None]
  - DRUG INEFFECTIVE FOR UNAPPROVED INDICATION [None]
  - ENDOCARDITIS [None]
  - INTERVERTEBRAL DISCITIS [None]
